FAERS Safety Report 11077296 (Version 2)
Quarter: 2015Q2

REPORT INFORMATION
  Report Type: Report from Study
  Country: US (occurrence: US)
  Receive Date: 20150429
  Receipt Date: 20150505
  Transmission Date: 20150821
  Serious: Yes (Life-Threatening, Hospitalization)
  Sender: FDA-Public Use
  Company Number: PHHO2015US007329

PATIENT
  Age: 62 Year
  Sex: Female
  Weight: 55.5 kg

DRUGS (15)
  1. CONSTULOSE [Concomitant]
     Active Substance: LACTULOSE
     Dosage: UNK, ONE TIME DOSE (30 G ORAL SOLUTION)
     Route: 048
     Dates: start: 20150426, end: 20150426
  2. ALDACTONE [Concomitant]
     Active Substance: SPIRONOLACTONE
     Indication: ASCITES
     Dosage: 0.5 DF (50 MG), QD (QAM)
     Route: 048
     Dates: start: 2012
  3. ZOLOFT [Concomitant]
     Active Substance: SERTRALINE HYDROCHLORIDE
     Indication: DEPRESSION
     Dosage: 1.5 DF (150 MG), QD (QAM)
     Route: 048
     Dates: start: 1995
  4. DEXTROAMPHETAMINE [Concomitant]
     Active Substance: DEXTROAMPHETAMINE
     Indication: NARCOLEPSY
     Dosage: 4 DF (40 MG), BID
     Route: 048
     Dates: start: 2008, end: 20150420
  5. PRILOSEC [Concomitant]
     Active Substance: OMEPRAZOLE MAGNESIUM
     Indication: GASTROOESOPHAGEAL REFLUX DISEASE
     Dosage: 1 DF (20 MG), QD (QAM)
     Route: 048
     Dates: start: 201503
  6. HYDROCORTISONE. [Concomitant]
     Active Substance: HYDROCORTISONE
     Indication: PRURITUS
     Dosage: 1 APP, QID PRN
     Route: 061
     Dates: start: 1995
  7. HYDROCHLOROTHIAZIDE. [Concomitant]
     Active Substance: HYDROCHLOROTHIAZIDE
     Indication: ASCITES
     Dosage: 1 DF (25 MG), QD (QAM)
     Route: 048
     Dates: start: 2012
  8. MAGNESIUM GLUCONATE [Concomitant]
     Active Substance: MAGNESIUM GLUCONATE
     Indication: MUSCLE SPASMS
     Dosage: 1 DF (500 MG), QD (QAM)
     Route: 048
     Dates: start: 2000
  9. TUMS [Concomitant]
     Active Substance: CALCIUM CARBONATE
     Indication: OSTEOPOROSIS
     Dosage: 2 DF (1000 MG), QD
     Route: 048
     Dates: start: 201406
  10. CHOLECALCIFEROL [Concomitant]
     Active Substance: CHOLECALCIFEROL
     Indication: VITAMIN D DEFICIENCY
     Dosage: 2 DF (2000 U), QD (QAM)
     Route: 048
     Dates: start: 201406
  11. ZYKADIA [Suspect]
     Active Substance: CERITINIB
     Indication: LIVER DISORDER
     Dosage: 750 MG, ONCE/SINGLE
     Route: 048
     Dates: start: 20150424, end: 20150424
  12. CONSTULOSE [Concomitant]
     Active Substance: LACTULOSE
     Indication: HEPATIC ENCEPHALOPATHY
     Dosage: 30 ML (10 G/15 ML), TID
     Route: 048
     Dates: start: 201209
  13. CONSTULOSE [Concomitant]
     Active Substance: LACTULOSE
     Dosage: UNK, TID (20 G ORAL SOLUTION)
     Route: 048
     Dates: start: 20150426, end: 20150426
  14. CONSTULOSE [Concomitant]
     Active Substance: LACTULOSE
     Dosage: UNK, TID (10 G/15 ML ORAL SOLUTION)
     Route: 048
     Dates: start: 20150426
  15. TENORMIN [Concomitant]
     Active Substance: ATENOLOL
     Indication: MIGRAINE
     Dosage: 1 DF (25 MG), QD
     Route: 048
     Dates: start: 1980

REACTIONS (1)
  - Hepatic encephalopathy [Recovered/Resolved]

NARRATIVE: CASE EVENT DATE: 20150425
